FAERS Safety Report 11690986 (Version 2)
Quarter: 2015Q4

REPORT INFORMATION
  Report Type: Spontaneous
  Country: US (occurrence: US)
  Receive Date: 20151102
  Receipt Date: 20151113
  Transmission Date: 20160304
  Serious: Yes (Death, Other)
  Sender: FDA-Public Use
  Company Number: US-009507513-1511USA000648

PATIENT
  Age: 93 Year
  Sex: Female

DRUGS (6)
  1. ZOCOR [Suspect]
     Active Substance: SIMVASTATIN
     Dosage: UNK
     Route: 048
  2. FOSFOCOL [Suspect]
     Active Substance: SODIUM PHOSPHATE, DIBASIC\SODIUM PHOSPHATE, MONOBASIC, ANHYDROUS
     Dosage: UNK
     Route: 048
  3. ASPIRIN. [Concomitant]
     Active Substance: ASPIRIN
     Route: 048
  4. POLYETHYLENE GLYCOL 3350. [Suspect]
     Active Substance: POLYETHYLENE GLYCOL 3350
     Indication: PRODUCT USED FOR UNKNOWN INDICATION
     Dosage: UNK
     Route: 048
  5. ZOCOR [Suspect]
     Active Substance: SIMVASTATIN
     Dosage: UNK
     Route: 048
  6. BISOPROLOL FUMARATE. [Suspect]
     Active Substance: BISOPROLOL FUMARATE
     Dosage: UNK
     Route: 048

REACTIONS (9)
  - Hypokalaemia [Fatal]
  - Hypernatraemia [Fatal]
  - Cardio-respiratory arrest [Fatal]
  - Dehydration [Fatal]
  - Cardiogenic shock [Fatal]
  - Ventricular arrhythmia [Fatal]
  - Acute myocardial infarction [Fatal]
  - Diarrhoea [Fatal]
  - Thrombosis in device [Fatal]
